FAERS Safety Report 9870050 (Version 1)
Quarter: 2014Q1

REPORT INFORMATION
  Report Type: Spontaneous
  Country: US (occurrence: US)
  Receive Date: 20140205
  Receipt Date: 20140205
  Transmission Date: 20141002
  Serious: No
  Sender: FDA-Public Use
  Company Number: US-GLAXOSMITHKLINE-A1045494A

PATIENT
  Sex: Female

DRUGS (1)
  1. VALTREX [Suspect]
     Indication: ANTIVIRAL TREATMENT
     Route: 065
     Dates: start: 20101124

REACTIONS (2)
  - Surgery [Unknown]
  - Job change [Unknown]
